FAERS Safety Report 10607760 (Version 1)
Quarter: 2014Q4

REPORT INFORMATION
  Report Type: Spontaneous
  Country: GR (occurrence: GR)
  Receive Date: 20141125
  Receipt Date: 20141125
  Transmission Date: 20150529
  Serious: Yes (Hospitalization, Other)
  Sender: FDA-Public Use
  Company Number: GR-TEVA-523540ISR

PATIENT
  Age: 75 Year
  Sex: Male

DRUGS (6)
  1. FLUOROURACIL. [Suspect]
     Active Substance: FLUOROURACIL
     Indication: COLORECTAL CANCER
     Route: 042
     Dates: start: 20141023, end: 20141024
  2. OXALIPLATIN TEVA [Suspect]
     Active Substance: OXALIPLATIN
     Indication: COLORECTAL CANCER
     Route: 042
     Dates: start: 20141023, end: 20141024
  3. OXALIPLATIN TEVA [Suspect]
     Active Substance: OXALIPLATIN
     Route: 042
     Dates: start: 20141117
  4. FOLINIC ACID [Suspect]
     Active Substance: LEUCOVORIN
     Indication: COLORECTAL CANCER
     Route: 042
     Dates: start: 20141023, end: 20141024
  5. FLUOROURACIL. [Suspect]
     Active Substance: FLUOROURACIL
     Route: 042
     Dates: start: 20141117
  6. FOLINIC ACID [Suspect]
     Active Substance: LEUCOVORIN
     Route: 042
     Dates: start: 20141117

REACTIONS (1)
  - Duodenal perforation [Recovered/Resolved]

NARRATIVE: CASE EVENT DATE: 20141023
